FAERS Safety Report 9479877 (Version 1)
Quarter: 2013Q3

REPORT INFORMATION
  Report Type: Spontaneous
  Country: US (occurrence: US)
  Receive Date: 20130828
  Receipt Date: 20130828
  Transmission Date: 20140515
  Serious: Yes (Death)
  Sender: FDA-Public Use
  Company Number: US-ROCHE-1267446

PATIENT
  Sex: Female

DRUGS (4)
  1. XELODA [Suspect]
     Indication: HEPATIC CANCER
     Dosage: TAKE 2 TABS QAM AND 3 QPM, 7 DAYS ON + 7 DAYS OFF
     Route: 048
     Dates: start: 20130328
  2. OXYCODONE [Concomitant]
  3. PRILOSEC [Concomitant]
  4. ZOFRAN [Concomitant]

REACTIONS (1)
  - Death [Fatal]
